FAERS Safety Report 23061311 (Version 1)
Quarter: 2023Q4

REPORT INFORMATION
  Report Type: Spontaneous
  Country: AE (occurrence: AE)
  Receive Date: 20231013
  Receipt Date: 20231013
  Transmission Date: 20240110
  Serious: Yes (Other)
  Sender: FDA-Public Use
  Company Number: AE-PFIZER INC-202200132961

PATIENT
  Age: 56 Year
  Sex: Female

DRUGS (1)
  1. ENBREL [Suspect]
     Active Substance: ETANERCEPT
     Indication: Psoriatic arthropathy
     Dosage: 50 MG, ONCE A WEEK, FOR 3 MONTHS
     Route: 058
     Dates: start: 20220908

REACTIONS (7)
  - Polyneuropathy [Unknown]
  - Psoriatic arthropathy [Unknown]
  - COVID-19 [Recovered/Resolved]
  - Muscle spasms [Unknown]
  - Osteoporosis [Unknown]
  - Osteoarthritis [Unknown]
  - Drug ineffective [Unknown]
